FAERS Safety Report 19087813 (Version 4)
Quarter: 2021Q2

REPORT INFORMATION
  Report Type: Report from Study
  Country: None (occurrence: US)
  Receive Date: 20210402
  Receipt Date: 20210603
  Transmission Date: 20210717
  Serious: Yes (Other)
  Sender: FDA-Public Use
  Company Number: US-ABBVIE-21K-163-3836596-00

PATIENT
  Sex: Female
  Weight: 86.26 kg

DRUGS (2)
  1. HUMIRA [Suspect]
     Active Substance: ADALIMUMAB
     Indication: RHEUMATOID ARTHRITIS
     Route: 058
  2. HUMIRA [Suspect]
     Active Substance: ADALIMUMAB
     Indication: ANKYLOSING SPONDYLITIS
     Dosage: CITRATE FREE
     Route: 058

REACTIONS (9)
  - Arthritis [Unknown]
  - Cardiomegaly [Recovered/Resolved with Sequelae]
  - Arthropathy [Unknown]
  - Feeling abnormal [Unknown]
  - Joint injury [Recovered/Resolved]
  - Pericardial effusion [Recovered/Resolved with Sequelae]
  - Unevaluable event [Recovering/Resolving]
  - Pain [Unknown]
  - Post procedural inflammation [Recovered/Resolved]
